FAERS Safety Report 25246180 (Version 1)
Quarter: 2025Q2

REPORT INFORMATION
  Report Type: Other
  Country: US (occurrence: US)
  Receive Date: 20250428
  Receipt Date: 20250428
  Transmission Date: 20250716
  Serious: No
  Sender: TRAVERE THERAPEUTICS
  Company Number: US-TRAVERE-2025TVT00339

PATIENT
  Age: 36 Year
  Sex: Female

DRUGS (4)
  1. FILSPARI [Suspect]
     Active Substance: SPARSENTAN
     Indication: Proteinuria
     Route: 048
     Dates: start: 202502
  2. FILSPARI [Suspect]
     Active Substance: SPARSENTAN
     Indication: Glomerulonephritis membranoproliferative
  3. VITAMIN D3 [Concomitant]
     Active Substance: CHOLECALCIFEROL
  4. FISH OIL [Concomitant]
     Active Substance: FISH OIL

REACTIONS (2)
  - Product use in unapproved indication [Unknown]
  - Hypotension [Unknown]

NARRATIVE: CASE EVENT DATE: 20250201
